FAERS Safety Report 20034838 (Version 2)
Quarter: 2021Q4

REPORT INFORMATION
  Report Type: Spontaneous
  Country: GB (occurrence: GB)
  Receive Date: 20211104
  Receipt Date: 20211224
  Transmission Date: 20220303
  Serious: No
  Sender: FDA-Public Use
  Company Number: GB-NOVARTISPH-NVSC2021GB169573

PATIENT
  Age: 62 Year
  Sex: Male

DRUGS (9)
  1. ABIRATERONE ACETATE [Suspect]
     Active Substance: ABIRATERONE ACETATE
     Indication: Prostate cancer
     Dosage: 500 MG
     Route: 048
     Dates: start: 20200211
  2. ABIRATERONE ACETATE [Suspect]
     Active Substance: ABIRATERONE ACETATE
     Dosage: 1000 MG
     Route: 048
     Dates: start: 20200211
  3. ABIRATERONE ACETATE [Suspect]
     Active Substance: ABIRATERONE ACETATE
     Dosage: 500 MG
     Route: 048
     Dates: start: 202004
  4. ABIRATERONE ACETATE [Suspect]
     Active Substance: ABIRATERONE ACETATE
     Dosage: 850 MG
     Route: 048
     Dates: start: 20210426
  5. ABIRATERONE ACETATE [Suspect]
     Active Substance: ABIRATERONE ACETATE
     Dosage: 1000 MG
     Route: 048
  6. ABIRATERONE ACETATE [Suspect]
     Active Substance: ABIRATERONE ACETATE
     Dosage: 1000 MG
     Route: 048
  7. ABIRATERONE ACETATE [Suspect]
     Active Substance: ABIRATERONE ACETATE
     Dosage: 1000 MG
     Route: 048
  8. METFORMIN [Suspect]
     Active Substance: METFORMIN HYDROCHLORIDE
     Indication: Product used for unknown indication
     Dosage: 850 MG
     Route: 048
     Dates: start: 20210426
  9. PREDNISOLONE [Suspect]
     Active Substance: PREDNISOLONE
     Indication: Prostate cancer
     Dosage: 10 MG
     Route: 048
     Dates: start: 20200211

REACTIONS (7)
  - Musculoskeletal chest pain [Recovering/Resolving]
  - Prostatic specific antigen increased [Recovering/Resolving]
  - Blood bilirubin decreased [Recovering/Resolving]
  - Influenza like illness [Recovering/Resolving]
  - Blood potassium decreased [Recovering/Resolving]
  - Asthenia [Recovering/Resolving]
  - Diarrhoea [Recovered/Resolved]

NARRATIVE: CASE EVENT DATE: 20210226
